FAERS Safety Report 8418060-X (Version None)
Quarter: 2012Q2

REPORT INFORMATION
  Report Type: 
  Country: None (occurrence: None)
  Receive Date: 20120531
  Receipt Date: 20120515
  Transmission Date: 20120825
  Serious: Yes (Hospitalization)
  Sender: FDA-Public Use
  Company Number: 20120326

PATIENT
  Age: 22 Year
  Sex: Female

DRUGS (2)
  1. DILANTIN [Suspect]
     Indication: CONVULSION PROPHYLAXIS
     Dosage: UNKNOWN
  2. LEVETIRACETAM [Suspect]
     Indication: CONVULSION PROPHYLAXIS
     Dosage: UNKNOWN

REACTIONS (9)
  - HEART RATE INCREASED [None]
  - TRANSAMINASES INCREASED [None]
  - COAGULOPATHY [None]
  - HYPERBILIRUBINAEMIA [None]
  - GASTROENTERITIS [None]
  - JAUNDICE [None]
  - MUCOSAL DRYNESS [None]
  - ANTICONVULSANT DRUG LEVEL DECREASED [None]
  - DRUG RASH WITH EOSINOPHILIA AND SYSTEMIC SYMPTOMS [None]
